FAERS Safety Report 6969403-5 (Version None)
Quarter: 2010Q3

REPORT INFORMATION
  Report Type: 
  Country: None (occurrence: None)
  Receive Date: 20100907
  Receipt Date: 20100901
  Transmission Date: 20110219
  Serious: Yes (Hospitalization)
  Sender: FDA-Public Use
  Company Number: DE-AMGEN-QUU435907

PATIENT
  Age: 54 Year
  Sex: Female

DRUGS (6)
  1. ENBREL [Suspect]
     Indication: ANKYLOSING SPONDYLITIS
     Route: 058
     Dates: start: 20091112, end: 20100801
  2. CALCIUM [Concomitant]
     Dosage: UNKNOWN
     Route: 048
  3. IRON [Concomitant]
     Dosage: UNKNOWN
  4. UNSPECIFIED BETA BLOCKER [Concomitant]
  5. UNSPECIFIED ANALGESIC [Concomitant]
  6. UNSPECIFIED MEDICATION [Concomitant]

REACTIONS (1)
  - SPINAL OPERATION [None]
